FAERS Safety Report 15674693 (Version 1)
Quarter: 2018Q4

REPORT INFORMATION
  Report Type: Spontaneous
  Country: PT (occurrence: PT)
  Receive Date: 20181130
  Receipt Date: 20181130
  Transmission Date: 20190205
  Serious: Yes (Other)
  Sender: FDA-Public Use
  Company Number: PT-ROCHE-2221889

PATIENT
  Age: 45 Year
  Sex: Female

DRUGS (2)
  1. TRASTUZUMAB EMTANSINE [Suspect]
     Active Substance: ADO-TRASTUZUMAB EMTANSINE
     Indication: HER-2 POSITIVE BREAST CANCER
     Route: 058
  2. HERCEPTIN [Suspect]
     Active Substance: TRASTUZUMAB
     Indication: HER-2 POSITIVE BREAST CANCER
     Route: 058

REACTIONS (1)
  - Ejection fraction abnormal [Recovered/Resolved]

NARRATIVE: CASE EVENT DATE: 201702
